FAERS Safety Report 7309110-2 (Version None)
Quarter: 2011Q1

REPORT INFORMATION
  Report Type: 
  Country: None (occurrence: None)
  Receive Date: 20110211
  Receipt Date: 20110202
  Transmission Date: 20110831
  Serious: Yes (Death, Hospitalization)
  Sender: FDA-Public Use
  Company Number: TCI2011A00986

PATIENT
  Age: 74 Year
  Sex: Male

DRUGS (9)
  1. ACTOS [Suspect]
     Indication: TYPE 2 DIABETES MELLITUS
     Dosage: 30 MG (30 MG,1 D) PER ORAL
     Route: 048
     Dates: start: 20100302, end: 20110101
  2. MYONAL (EPERISONE HYDROCHLORIDE) [Concomitant]
  3. ANGIOTENSIN II ANTAGONISTS [Concomitant]
  4. GASTER D (FAMOTIDINE) [Concomitant]
  5. HMG COA REDUCTASE INHIBITORS [Concomitant]
  6. TICLOPIDINE HYDROCHLORIDE [Concomitant]
  7. MEXITIL [Concomitant]
  8. GLYBURIDE [Concomitant]
  9. METHYCOBAL (MECOBALAMIN) [Concomitant]

REACTIONS (1)
  - CEREBELLAR INFARCTION [None]
